FAERS Safety Report 7389122-3 (Version None)
Quarter: 2011Q1

REPORT INFORMATION
  Report Type: 
  Country: None (occurrence: None)
  Receive Date: 20110329
  Receipt Date: 20110329
  Transmission Date: 20110831
  Serious: Yes (Life-Threatening, Hospitalization, Disabling, Other)
  Sender: FDA-Public Use
  Company Number: None

PATIENT
  Sex: Female
  Weight: 59.8748 kg

DRUGS (2)
  1. ABILIFY [Suspect]
     Dosage: 30MG A DAY DAILY
  2. CLONAZEPAM [Suspect]
     Indication: PARANOIA
     Dosage: 3MG A DAY DAILY

REACTIONS (15)
  - MEMORY IMPAIRMENT [None]
  - ASTHENIA [None]
  - CHEST DISCOMFORT [None]
  - CONFUSIONAL STATE [None]
  - LIBIDO DECREASED [None]
  - BONE PAIN [None]
  - CHEST PAIN [None]
  - HEADACHE [None]
  - DEPRESSION [None]
  - IRRITABILITY [None]
  - WEIGHT DECREASED [None]
  - DECREASED APPETITE [None]
  - ABDOMINAL PAIN UPPER [None]
  - DIZZINESS [None]
  - MARITAL PROBLEM [None]
